FAERS Safety Report 5742404-0 (Version None)
Quarter: 2008Q2

REPORT INFORMATION
  Report Type: 
  Country: None (occurrence: None)
  Receive Date: 20080515
  Receipt Date: 20080430
  Transmission Date: 20081010
  Serious: Yes (Life-Threatening)
  Sender: FDA-Public Use
  Company Number: S08-FRA-00683-01

PATIENT
  Age: 26 Year
  Sex: Female

DRUGS (5)
  1. PROPESS (DINOPROSTONE) [Suspect]
     Indication: LABOUR INDUCTION
     Dosage: 10 MG ONCE VG
     Route: 067
     Dates: start: 20071206, end: 20071207
  2. SPASFON LYOC (PHLOROGLUCINOL) [Concomitant]
  3. NUBAIN [Concomitant]
  4. MAG 2 (MAGNESIUM PIDOLATE) [Concomitant]
  5. ATARAX [Concomitant]

REACTIONS (9)
  - CAESAREAN SECTION [None]
  - DISSEMINATED INTRAVASCULAR COAGULATION [None]
  - DRUG EXPOSURE DURING PREGNANCY [None]
  - FALSE LABOUR [None]
  - FOETAL DISTRESS SYNDROME [None]
  - POST PROCEDURAL HAEMORRHAGE [None]
  - PREMATURE SEPARATION OF PLACENTA [None]
  - UTERINE CONTRACTIONS ABNORMAL [None]
  - UTERINE HYPOTONUS [None]
